FAERS Safety Report 21122927 (Version 8)
Quarter: 2024Q4

REPORT INFORMATION
  Report Type: Report from Study
  Country: CA (occurrence: CA)
  Receive Date: 20220724
  Receipt Date: 20241118
  Transmission Date: 20250115
  Serious: Yes (Other)
  Sender: AMGEN
  Company Number: CA-AMGEN-CANSL2022082908

PATIENT
  Age: 67 Year
  Sex: Female

DRUGS (11)
  1. AVSOLA [Suspect]
     Active Substance: INFLIXIMAB-AXXQ
     Indication: Crohn^s disease
     Dosage: 300 MILLIGRAM, Q8WK
     Route: 065
     Dates: start: 20220116
  2. AVSOLA [Suspect]
     Active Substance: INFLIXIMAB-AXXQ
     Indication: Ankylosing spondylitis
     Dosage: 300 MILLIGRAM, Q8WK
     Route: 065
  3. AVSOLA [Suspect]
     Active Substance: INFLIXIMAB-AXXQ
     Dosage: 300 MILLIGRAM, Q8WK
     Route: 065
  4. AVSOLA [Suspect]
     Active Substance: INFLIXIMAB-AXXQ
     Dosage: 300 MILLIGRAM, Q8WK
     Route: 065
  5. AVSOLA [Suspect]
     Active Substance: INFLIXIMAB-AXXQ
     Dosage: 300 MILLIGRAM, Q8WK
     Route: 065
  6. AVSOLA [Suspect]
     Active Substance: INFLIXIMAB-AXXQ
     Dosage: 300 MILLIGRAM, Q8WK
     Route: 065
  7. AVSOLA [Suspect]
     Active Substance: INFLIXIMAB-AXXQ
     Dosage: 300 MILLIGRAM, Q8WK
     Route: 065
  8. POTASSIUM [Concomitant]
     Active Substance: POTASSIUM
     Dosage: UNK
  9. ROSUVASTATIN [Concomitant]
     Active Substance: ROSUVASTATIN
     Dosage: UNK
     Route: 065
  10. METHOTREXATE [Concomitant]
     Active Substance: METHOTREXATE
  11. METHOTREXATE [Concomitant]
     Active Substance: METHOTREXATE
     Dosage: UNK
     Dates: start: 20240314

REACTIONS (27)
  - Syncope [Recovered/Resolved]
  - Hypertension [Unknown]
  - Haematochezia [Unknown]
  - Eye haemorrhage [Unknown]
  - Renal artery occlusion [Unknown]
  - Peripheral artery occlusion [Unknown]
  - Angina pectoris [Unknown]
  - Nausea [Unknown]
  - Diarrhoea [Unknown]
  - Dizziness [Unknown]
  - Headache [Unknown]
  - Frequent bowel movements [Unknown]
  - Flatulence [Unknown]
  - Paraesthesia [Unknown]
  - Pain [Not Recovered/Not Resolved]
  - Arthralgia [Unknown]
  - Abdominal pain [Unknown]
  - Asthenia [Unknown]
  - Hepatic enzyme abnormal [Unknown]
  - Fatigue [Unknown]
  - Pain in extremity [Unknown]
  - Back pain [Unknown]
  - Musculoskeletal stiffness [Unknown]
  - Mucous stools [Unknown]
  - Constipation [Unknown]
  - Faeces discoloured [Unknown]
  - Faeces soft [Unknown]

NARRATIVE: CASE EVENT DATE: 20220101
